FAERS Safety Report 7509848-8 (Version None)
Quarter: 2011Q2

REPORT INFORMATION
  Report Type: 
  Country: None (occurrence: None)
  Receive Date: 20110527
  Receipt Date: 20110124
  Transmission Date: 20111010
  Serious: Yes (Other)
  Sender: FDA-Public Use
  Company Number: B0696667A

PATIENT
  Sex: Male

DRUGS (5)
  1. VALIUM [Concomitant]
     Indication: EPILEPSY
     Route: 048
  2. DEPAKINE 500 [Concomitant]
     Indication: EPILEPSY
  3. SERETIDE [Suspect]
     Indication: RESPIRATORY FAILURE
     Route: 055
     Dates: start: 20100401
  4. PHENOBARBITAL TAB [Concomitant]
     Indication: EPILEPSY
     Route: 048
  5. OROCAL [Concomitant]

REACTIONS (2)
  - FATIGUE [None]
  - ADRENAL INSUFFICIENCY [None]
